FAERS Safety Report 15554774 (Version 1)
Quarter: 2018Q4

REPORT INFORMATION
  Report Type: Spontaneous
  Country: US (occurrence: US)
  Receive Date: 20181022
  Receipt Date: 20181022
  Transmission Date: 20190205
  Serious: Yes (Other)
  Sender: FDA-Public Use
  Company Number: None

PATIENT
  Age: 70 Year
  Sex: Male
  Weight: 70.31 kg

DRUGS (9)
  1. PROBIOTIC [Concomitant]
     Active Substance: PROBIOTICS NOS
  2. NE=IFEDIPINE 30 MG ONCE A DAY [Concomitant]
  3. BENICAR 40 MG ONCE A DAY [Concomitant]
  4. OLMESARTAN MEDOXOMIL 40GM TAB [Suspect]
     Active Substance: OLMESARTAN MEDOXOMIL
     Indication: BLOOD PRESSURE INADEQUATELY CONTROLLED
     Dosage: ?          OTHER STRENGTH:40 MG TAB;QUANTITY:1;?
     Route: 048
     Dates: start: 20180614, end: 20180912
  5. ASPIRIN. [Concomitant]
     Active Substance: ASPIRIN
  6. MULTI-VITAMIN [Concomitant]
     Active Substance: .ALPHA.-TOCOPHEROL ACETATE, DL-\ASCORBIC ACID\CYANOCOBALAMIN\FLUORIDE ION\FOLIC ACID\NIACIN\PYRIDOXINE\RIBOFLAVIN\THIAMINE\VITAMIN A\VITAMIN D
  7. EPLERENONE 25 MG TWICE A DAY [Concomitant]
  8. VITAMIN D3 [Concomitant]
     Active Substance: CHOLECALCIFEROL
  9. COLOSTROM [Concomitant]

REACTIONS (7)
  - Arthropathy [None]
  - Arthralgia [None]
  - Tendon disorder [None]
  - Ligament disorder [None]
  - Pain in extremity [None]
  - Back pain [None]
  - Product substitution issue [None]

NARRATIVE: CASE EVENT DATE: 20180813
